FAERS Safety Report 14228102 (Version 5)
Quarter: 2019Q1

REPORT INFORMATION
  Report Type: Spontaneous
  Country: US (occurrence: US)
  Receive Date: 20171127
  Receipt Date: 20190228
  Transmission Date: 20190417
  Serious: No
  Sender: FDA-Public Use
  Company Number: US-ACTELION-A-NJ2017-163246

PATIENT
  Sex: Female
  Weight: 73.92 kg

DRUGS (5)
  1. ADEMPAS [Interacting]
     Active Substance: RIOCIGUAT
     Dosage: 1.5 MG, TID
     Route: 065
  2. ADEMPAS [Interacting]
     Active Substance: RIOCIGUAT
     Dosage: 2 MG, TID
     Route: 065
  3. ADEMPAS [Interacting]
     Active Substance: RIOCIGUAT
     Indication: PRODUCT USED FOR UNKNOWN INDICATION
     Dosage: 2.5 MG, TID
     Route: 065
  4. OPSUMIT [Suspect]
     Active Substance: MACITENTAN
     Indication: PULMONARY ARTERIAL HYPERTENSION
     Dosage: 10 MG, QD
     Route: 048
  5. FLOMAX [Interacting]
     Active Substance: TAMSULOSIN HYDROCHLORIDE
     Indication: PRODUCT USED FOR UNKNOWN INDICATION
     Route: 065

REACTIONS (9)
  - Dyspnoea [Unknown]
  - Blood pressure decreased [Unknown]
  - Renal stone removal [Unknown]
  - Candida infection [Recovered/Resolved]
  - Nervous system disorder [Unknown]
  - Asthenia [Unknown]
  - Syncope [Unknown]
  - Nephrolithiasis [Unknown]
  - Presyncope [Unknown]
